FAERS Safety Report 8986783 (Version 1)
Quarter: 2012Q4

REPORT INFORMATION
  Report Type: Spontaneous
  Country: US (occurrence: None)
  Receive Date: 20121219
  Receipt Date: 20121219
  Transmission Date: 20130627
  Serious: No
  Sender: FDA-Public Use
  Company Number: None

PATIENT
  Age: 34 Year
  Sex: Female
  Weight: 45.36 kg

DRUGS (10)
  1. CLONAZEPAM [Suspect]
     Indication: PANIC DISORDER
     Route: 048
     Dates: start: 20121001, end: 20121115
  2. CLONAZEPAM [Suspect]
     Indication: STRESS
     Route: 048
     Dates: start: 20121001, end: 20121115
  3. CLONAZEPAM [Suspect]
     Indication: GENERALIZED ANXIETY DISORDER
     Route: 048
     Dates: start: 20121001, end: 20121115
  4. CLONAZEPAM [Suspect]
     Indication: PANIC DISORDER
     Dates: start: 20121121, end: 20121217
  5. CLONAZEPAM [Suspect]
     Indication: STRESS
     Dates: start: 20121121, end: 20121217
  6. CLONAZEPAM [Suspect]
     Indication: GENERALIZED ANXIETY DISORDER
     Dates: start: 20121121, end: 20121217
  7. ALPRAZOLAM [Concomitant]
  8. WELLBUTRIN XL [Concomitant]
  9. ADDERALL [Concomitant]
  10. LAMICTAL [Concomitant]

REACTIONS (4)
  - Drug ineffective [None]
  - Headache [None]
  - Product substitution issue [None]
  - Product quality issue [None]
